FAERS Safety Report 7486704-5 (Version None)
Quarter: 2011Q2

REPORT INFORMATION
  Report Type: 
  Country: None (occurrence: None)
  Receive Date: 20110517
  Receipt Date: 20100629
  Transmission Date: 20111010
  Serious: No
  Sender: FDA-Public Use
  Company Number: US-NOVEN-ALL1-2010-03321

PATIENT

DRUGS (4)
  1. DAYTRANA [Suspect]
     Dosage: 20 MG, 1X/DAY:QD
     Route: 062
     Dates: start: 20070101
  2. RISPERDAL [Concomitant]
     Dosage: UNK, 1X/DAY:QD
     Route: 048
     Dates: start: 20080101, end: 20100501
  3. RISPERDAL [Concomitant]
     Dosage: UNK MG, UNK
     Dates: start: 20100604
  4. TENEX [Concomitant]

REACTIONS (4)
  - TIC [None]
  - OFF LABEL USE [None]
  - AUTISM [None]
  - AGGRESSION [None]
